FAERS Safety Report 17363707 (Version 4)
Quarter: 2020Q2

REPORT INFORMATION
  Report Type: Spontaneous
  Country: CA (occurrence: CA)
  Receive Date: 20200203
  Receipt Date: 20200529
  Transmission Date: 20200713
  Serious: Yes (Hospitalization, Other)
  Sender: FDA-Public Use
  Company Number: CA-CELLTRION INC.-2020CA017726

PATIENT

DRUGS (23)
  1. INFLECTRA [Suspect]
     Active Substance: INFLIXIMAB-DYYB
     Dosage: 400 MG, 0, 2, 6 WEEKS, THEN EVERY 8 WEEKS
     Route: 042
     Dates: start: 20191219
  2. SANDOZ FLUOROMETHOLONE [Concomitant]
     Active Substance: FLUOROMETHOLONE
     Dosage: 1 GTT, 1X/DAY
     Route: 061
  3. PMS-NYSTATIN [Concomitant]
     Dosage: 5 ML, (SWISH AND SPLIT QID)
     Route: 048
  4. FLOVENT HFA [Concomitant]
     Active Substance: FLUTICASONE PROPIONATE
     Dosage: 250 UG, 2X/DAY (2 INH.BID)
     Route: 055
  5. VENTOLIN HFA [Concomitant]
     Active Substance: ALBUTEROL SULFATE
     Dosage: 100 UG, 4X/DAY (2 INH. QID)
     Route: 055
  6. OCUFLOX [Concomitant]
     Active Substance: OFLOXACIN
     Dosage: 1 GTT, 4X/DAY (EVERY 4 TO 6 HOURS FOR 7 DAYS)
     Route: 061
  7. AURO RAMIPRIL [Concomitant]
     Indication: ANGINA PECTORIS
     Dosage: 5 MG, 1X/DAY (OD HS)
     Route: 048
  8. REFRESH CELLUVISC [Concomitant]
     Active Substance: CARBOXYMETHYLCELLULOSE SODIUM
     Dosage: 1 GTT, (1 DROP LEFT EYE EVERY 4 HOURS)
     Route: 061
  9. PANTOPRAZOLE SODIUM. [Concomitant]
     Active Substance: PANTOPRAZOLE SODIUM
     Indication: GASTRIC PH DECREASED
     Dosage: 40 MG, 1X/DAY (OD AM)
     Route: 048
  10. FOLIC ACID. [Concomitant]
     Active Substance: FOLIC ACID
     Dosage: 5 MG, 2X/DAY
     Route: 048
  11. METHOTREXATE. [Concomitant]
     Active Substance: METHOTREXATE
     Dosage: 20 MG, WEEKLY
     Route: 065
  12. TYLENOL ARTHRITIS PAIN [Concomitant]
     Active Substance: ACETAMINOPHEN
     Indication: PAIN
     Dosage: 2 DF, 2X/DAY
     Route: 048
  13. JAMP VITAMIN D [Concomitant]
     Active Substance: CHOLECALCIFEROL
     Dosage: 2 DF, WEEKLY
     Route: 048
  14. APO-NADOL [Concomitant]
     Active Substance: NADOLOL
     Indication: BLOOD PRESSURE MEASUREMENT
     Dosage: UNK
  15. SYNTHROID [Concomitant]
     Active Substance: LEVOTHYROXINE SODIUM
     Indication: THYROID GLAND ABSCESS
     Dosage: 0.112 MG, 1X/DAY (AM)
     Route: 048
  16. APO-FLECAINIDE [Concomitant]
     Indication: CARDIAC DISORDER
     Dosage: 100 MG, 2X/DAY
     Route: 048
  17. INFLECTRA [Suspect]
     Active Substance: INFLIXIMAB-DYYB
     Dosage: 400 MG, 0, 2, 6 WEEKS, THEN EVERY 8 WEEKS
     Route: 042
     Dates: start: 20200128
  18. PARAFFIN OIL [Concomitant]
     Dosage: UNK, 1X/DAY (APPLY TO EYES HS)
     Route: 061
  19. APO-ATORVASTATIN [Concomitant]
     Active Substance: ATORVASTATIN
     Indication: BLOOD CHOLESTEROL INCREASED
     Dosage: 40 MG, 1X/DAY (OD HS)
     Route: 048
  20. JAMP CALCIUM [Concomitant]
     Dosage: 500 MG, 2X/DAY
     Route: 048
  21. XARELTO [Concomitant]
     Active Substance: RIVAROXABAN
     Indication: BLOOD DISORDER
     Dosage: 20 MG, 1X/DAY
     Route: 048
  22. INFLECTRA [Suspect]
     Active Substance: INFLIXIMAB-DYYB
     Indication: RHEUMATOID ARTHRITIS
     Dosage: 400 MG, 0, 2, 6 WEEKS, THEN EVERY 8 WEEKS
     Route: 042
     Dates: start: 20191203
  23. APO-NADOL [Concomitant]
     Active Substance: NADOLOL
     Indication: CARDIAC DISCOMFORT
     Dosage: 80 MG, 2X/DAY
     Route: 048

REACTIONS (9)
  - Loss of personal independence in daily activities [Recovering/Resolving]
  - Influenza [Recovering/Resolving]
  - Upper limb fracture [Recovering/Resolving]
  - Inappropriate schedule of product administration [Unknown]
  - Pneumonia [Recovering/Resolving]
  - Blood pressure increased [Unknown]
  - Forearm fracture [Unknown]
  - Asthenia [Unknown]
  - Neck pain [Unknown]

NARRATIVE: CASE EVENT DATE: 20191217
